FAERS Safety Report 9193342 (Version 1)
Quarter: 2013Q1

REPORT INFORMATION
  Report Type: Spontaneous
  Country: US (occurrence: US)
  Receive Date: 20130327
  Receipt Date: 20130327
  Transmission Date: 20140127
  Serious: No
  Sender: FDA-Public Use
  Company Number: US-PFIZER INC-2013098691

PATIENT
  Age: 51 Year
  Sex: Female
  Weight: 87.53 kg

DRUGS (4)
  1. XANAX [Suspect]
     Indication: ANXIETY
     Dosage: 0.25 MG, AS NEEDED
     Route: 048
  2. XANAX [Suspect]
     Indication: INSOMNIA
  3. CYMBALTA [Concomitant]
     Indication: MENTAL DISORDER
     Dosage: UNK
  4. ABILIFY [Concomitant]
     Indication: MENTAL DISORDER
     Dosage: UNK

REACTIONS (4)
  - Weight increased [Not Recovered/Not Resolved]
  - Dyspepsia [Not Recovered/Not Resolved]
  - Abdominal discomfort [Not Recovered/Not Resolved]
  - Off label use [Unknown]
